FAERS Safety Report 5168041-7 (Version None)
Quarter: 2006Q4

REPORT INFORMATION
  Report Type: 
  Country: None (occurrence: None)
  Receive Date: 20061208
  Receipt Date: 20060419
  Transmission Date: 20070319
  Serious: Yes (Other)
  Sender: FDA-Public Use
  Company Number: US-GLAXOSMITHKLINE-A0602461A

PATIENT
  Age: 68 Year
  Sex: Female

DRUGS (5)
  1. AVANDAMET [Suspect]
     Dosage: 2MG TWICE PER DAY
     Route: 048
  2. AVANDIA [Suspect]
     Dosage: 2MG TWICE PER DAY
     Route: 048
  3. GLUCOPHAGE [Concomitant]
  4. AMARYL [Concomitant]
  5. ZOCOR [Concomitant]

REACTIONS (3)
  - DIABETES MELLITUS INADEQUATE CONTROL [None]
  - OEDEMA PERIPHERAL [None]
  - WEIGHT INCREASED [None]
